FAERS Safety Report 4611041-3 (Version None)
Quarter: 2005Q1

REPORT INFORMATION
  Report Type: 
  Country: None (occurrence: None)
  Receive Date: 20050317
  Receipt Date: 20000720
  Transmission Date: 20050727
  Serious: Yes (Death)
  Sender: FDA-Public Use
  Company Number: NZ01-00170

PATIENT
  Sex: Female
  Weight: 65 kg

DRUGS (9)
  1. CLEXANE [Suspect]
     Indication: ANGINA UNSTABLE
     Route: 058
     Dates: start: 20000703, end: 20000705
  2. ACETYLSALICYLIC ACID SRT [Suspect]
     Route: 048
     Dates: start: 20000704, end: 20000706
  3. ISOSORBIDE [Concomitant]
     Route: 048
     Dates: start: 20000703, end: 20000706
  4. BENDROFLUAZIDE [Concomitant]
     Route: 048
     Dates: end: 20000706
  5. RENITEC [Concomitant]
  6. PREDNISONE [Concomitant]
     Dates: start: 20000626, end: 20000626
  7. AMOXICILLIN AND CLAVULANATE POTASSIUM [Concomitant]
     Route: 048
     Dates: start: 20000626, end: 20000706
  8. ATROVENT [Concomitant]
  9. VENTOLIN [Concomitant]

REACTIONS (4)
  - CIRCULATORY COLLAPSE [None]
  - HAEMOGLOBIN DECREASED [None]
  - INTRA-ABDOMINAL HAEMORRHAGE [None]
  - PERICARDIAL HAEMORRHAGE [None]
